FAERS Safety Report 8368464-9 (Version None)
Quarter: 2012Q2

REPORT INFORMATION
  Report Type: 
  Country: None (occurrence: None)
  Receive Date: 20120518
  Receipt Date: 20120510
  Transmission Date: 20120825
  Serious: Yes (Hospitalization)
  Sender: FDA-Public Use
  Company Number: PHHO2011DE01249

PATIENT
  Sex: Female
  Weight: 110 kg

DRUGS (8)
  1. EPIRUBICIN [Suspect]
     Dosage: 200 MG, UNK
     Route: 042
     Dates: start: 20101105, end: 20110107
  2. NO TREATMENT RECEIVED [Suspect]
     Indication: BREAST CANCER
     Dosage: NO TREATMENT
  3. PARACODIN BITARTRATE TAB [Concomitant]
     Indication: COUGH
     Dosage: UNK
     Route: 048
     Dates: start: 20110114, end: 20110120
  4. FLUOROURACIL [Suspect]
     Dosage: 100 MG, UNK
     Route: 042
     Dates: start: 20101105, end: 20110107
  5. CEFUROXIME [Concomitant]
     Indication: COUGH
     Dosage: 1.5 MG, 1-0-1
     Route: 048
     Dates: start: 20110114, end: 20110120
  6. ACETYLCYSTEINE [Concomitant]
     Indication: COUGH
     Dosage: 600 MG, 1-0-0
     Route: 048
     Dates: start: 20110114, end: 20110120
  7. ALLOPURINOL [Concomitant]
     Indication: GOUT
     Dosage: 300 MG, QD
     Route: 048
     Dates: start: 20100101
  8. CYCLOPHOSPHAMIDE [Suspect]
     Dosage: 1000 MG, UNK
     Route: 042
     Dates: start: 20101105, end: 20110107

REACTIONS (5)
  - PYREXIA [None]
  - NAUSEA [None]
  - DIARRHOEA [None]
  - VOMITING [None]
  - NASOPHARYNGITIS [None]
